FAERS Safety Report 24075340 (Version 1)
Quarter: 2024Q3

REPORT INFORMATION
  Report Type: Report from Study
  Country: PT (occurrence: PT)
  Receive Date: 20240710
  Receipt Date: 20240710
  Transmission Date: 20241016
  Serious: Yes (Death)
  Sender: ABBVIE
  Company Number: PT-ABBVIE-5832999

PATIENT
  Age: 78 Year
  Sex: Female

DRUGS (14)
  1. CARBIDOPA\LEVODOPA [Suspect]
     Active Substance: CARBIDOPA\LEVODOPA
     Indication: Parkinson^s disease
     Dosage: 20 MG + 5 MG (NJ)?MORN:15.5CC;MAINT:7.5CC/H;EXTR:4.5CC
     Route: 050
     Dates: start: 202407, end: 202407
  2. CARBIDOPA\LEVODOPA [Suspect]
     Active Substance: CARBIDOPA\LEVODOPA
     Dosage: 20 MG + 5 MG (NJ)?MORN:12CC;MAINT:5.5CC/H;EXTR:2CC?LAST ADMIN DATE: JUL 2024
     Route: 050
     Dates: start: 20240703
  3. GABAPENTIN [Concomitant]
     Active Substance: GABAPENTIN
     Indication: Product used for unknown indication
     Dosage: 3 TABLET?FORM STRENGTH: 300 MG, FREQUENCY TEXT: AT BREAKFAST, AT LUNCH AND AT DINNER,START DATE T...
     Route: 048
  4. SIMVASTATIN [Concomitant]
     Active Substance: SIMVASTATIN
     Indication: Product used for unknown indication
     Dosage: 1 TABLET?FORM STRENGTH: 20MG, FREQUENCY TEXT: AT DINNER,START DATE TEXT: BEFORE DUODOPA
     Route: 048
  5. MIRTAZAPINE [Concomitant]
     Active Substance: MIRTAZAPINE
     Indication: Product used for unknown indication
     Dosage: 1 TABLET?FORM STRENGTH: 30 MG, FREQUENCY TEXT: AT BEDTIME, START DATE TEXT: BEFORE DUODOPA
     Route: 048
  6. QUETIAPINE [Concomitant]
     Active Substance: QUETIAPINE
     Indication: Product used for unknown indication
     Dosage: 1 TABLET?SR?FORM STRENGTH: 200MG FREQUENCY TEXT: AT BEDTIME START DATE TEXT: BEFORE DUODOPA
     Route: 048
  7. PANTOPRAZOLE [Concomitant]
     Active Substance: PANTOPRAZOLE
     Indication: Product used for unknown indication
     Dosage: 1 TABLET?FORM STRENGTH: 20 MG?FREQUENCY TEXT: AT FASTING START DATE TEXT: BEFORE DUODOPA
     Route: 048
  8. VALSARTAN [Concomitant]
     Active Substance: VALSARTAN
     Indication: Hypertension
     Dosage: 1 TABLET?FORM STRENGTH: 20 MG FREQUENCY TEXT: AT BREAKFAST START DATE TEXT: BEFORE DUODOPA
     Route: 048
  9. ESCITALOPRAM [Concomitant]
     Active Substance: ESCITALOPRAM OXALATE
     Indication: Depression
     Dosage: 1 TABLET?FORM STRENGTH: 20 MG FREQUENCY TEXT: AT BREAKFAST START DATE TEXT: BEFORE DUODOPA
     Route: 048
  10. CLONAZEPAM [Concomitant]
     Active Substance: CLONAZEPAM
     Indication: Product used for unknown indication
     Dosage: 1 TABLET?FORM STRENGTH: 0.5 MG FREQUENCY TEXT: AT BEDTIME START DATE TEXT: BEFORE DUODOPA
     Route: 048
  11. DOMPERIDONE [Concomitant]
     Active Substance: DOMPERIDONE
     Indication: Product used for unknown indication
     Dosage: 1 TABLET?FORM STRENGTH: 10 MG FREQUENCY TEXT: IN THE MORNING START DATE TEXT: BEFORE DUODOPA
     Route: 048
  12. TAMSULOSIN [Concomitant]
     Active Substance: TAMSULOSIN
     Indication: Product used for unknown indication
     Dosage: 1 TABLET?FORM STRENGTH: 0.4 MG?FREQUENCY TEXT: AT BEDTIME?START DATE TEXT: BEFORE DUODOPA
     Route: 048
  13. RIVASTIGMINE [Concomitant]
     Active Substance: RIVASTIGMINE
     Indication: Parkinson^s disease
     Dosage: 13.3MG/24H?START DATE TEXT: BEFORE DUODOPA
     Route: 062
  14. ASPIRIN [Concomitant]
     Active Substance: ASPIRIN
     Indication: Product used for unknown indication
     Dosage: 1 TABLET?FORM STRENGTH: 100 MG FREQUENCY TEXT: AT LUNCH START DATE TEXT: BEFORE DUODOPA
     Route: 048

REACTIONS (1)
  - Cardio-respiratory arrest [Fatal]

NARRATIVE: CASE EVENT DATE: 20240708
